FAERS Safety Report 6983419-4 (Version None)
Quarter: 2010Q3

REPORT INFORMATION
  Report Type: 
  Country: None (occurrence: None)
  Receive Date: 20100914
  Receipt Date: 20100914
  Transmission Date: 20110219
  Serious: Yes (Hospitalization)
  Sender: FDA-Public Use
  Company Number: None

PATIENT
  Sex: Female
  Weight: 58.6 kg

DRUGS (2)
  1. CARBOPLATIN [Suspect]
     Dosage: 456 MG
     Dates: end: 20100825
  2. TAXOL [Suspect]
     Dosage: 271 MG
     Dates: end: 20100825

REACTIONS (4)
  - CATHETER SITE DISCHARGE [None]
  - CATHETER SITE ERYTHEMA [None]
  - NEUTROPHIL COUNT DECREASED [None]
  - PYREXIA [None]
